FAERS Safety Report 25630113 (Version 1)
Quarter: 2025Q3

REPORT INFORMATION
  Report Type: Spontaneous
  Country: MY (occurrence: MY)
  Receive Date: 20250801
  Receipt Date: 20250801
  Transmission Date: 20251021
  Serious: Yes (Other)
  Sender: GLAXOSMITHKLINE
  Company Number: MY-GLAXOSMITHKLINE-MY2024APC100137

PATIENT
  Sex: Female

DRUGS (2)
  1. BENLYSTA [Suspect]
     Active Substance: BELIMUMAB
     Indication: Systemic lupus erythematosus
  2. ANIFROLUMAB [Concomitant]
     Active Substance: ANIFROLUMAB
     Indication: Product used for unknown indication

REACTIONS (5)
  - Suicidal ideation [Recovered/Resolved]
  - Psychotic disorder [Recovered/Resolved]
  - Psychiatric symptom [Recovered/Resolved]
  - Depressive symptom [Recovered/Resolved]
  - Dissociative amnesia [Recovered/Resolved]
